FAERS Safety Report 8266489-5 (Version None)
Quarter: 2012Q2

REPORT INFORMATION
  Report Type: 
  Country: None (occurrence: None)
  Receive Date: 20120406
  Receipt Date: 20120402
  Transmission Date: 20120825
  Serious: Yes (Life-Threatening, Hospitalization, Disabling)
  Sender: FDA-Public Use
  Company Number: BR-ASTRAZENECA-2012SE21823

PATIENT
  Age: 64 Year
  Sex: Male
  Weight: 98 kg

DRUGS (7)
  1. CRESTOR [Suspect]
     Indication: BLOOD CHOLESTEROL INCREASED
     Route: 048
  2. CRESTOR [Suspect]
     Route: 048
  3. CRESTOR [Suspect]
     Route: 048
  4. SOMALGIN CARDIO [Concomitant]
     Route: 048
  5. DAFLON [Concomitant]
     Route: 048
  6. CRESTOR [Suspect]
     Indication: BLOOD TRIGLYCERIDES INCREASED
     Route: 048
  7. DIOVAN [Concomitant]
     Route: 048

REACTIONS (8)
  - OEDEMA PERIPHERAL [None]
  - PULMONARY EMBOLISM [None]
  - NEUROCYSTICERCOSIS [None]
  - SWELLING FACE [None]
  - CARDIAC ARREST [None]
  - MYOCARDIAL INFARCTION [None]
  - INAPPROPRIATE SCHEDULE OF DRUG ADMINISTRATION [None]
  - THROMBOSIS [None]
